FAERS Safety Report 17152392 (Version 1)
Quarter: 2019Q4

REPORT INFORMATION
  Report Type: Report from Study
  Country: IT (occurrence: IT)
  Receive Date: 20191213
  Receipt Date: 20191213
  Transmission Date: 20200122
  Serious: Yes (Other)
  Sender: FDA-Public Use
  Company Number: IT-MYLANLABS-2019M1122458

PATIENT
  Age: 44 Year
  Sex: Female

DRUGS (8)
  1. OLANZAPINE. [Suspect]
     Active Substance: OLANZAPINE
     Indication: AFFECTIVE DISORDER
     Dosage: 10 MILLIGRAM, QD
     Route: 048
     Dates: start: 20190502
  2. ACIDO VALPROICO                    /00228501/ [Concomitant]
     Active Substance: VALPROIC ACID
     Dosage: 500 MILLIGRAM
     Route: 048
  3. GABAPENTIN. [Concomitant]
     Active Substance: GABAPENTIN
     Dosage: 300 MILLIGRAM
     Route: 048
  4. LITHIUM. [Concomitant]
     Active Substance: LITHIUM
     Dosage: 150 MILLIGRAM
     Route: 048
  5. CLOTIAPINE [Suspect]
     Active Substance: CLOTHIAPINE
     Indication: AFFECTIVE DISORDER
     Dosage: 15 GTT DROPS, QD
     Route: 048
     Dates: start: 20190502
  6. CITALOPRAM [Concomitant]
     Active Substance: CITALOPRAM HYDROBROMIDE
     Dosage: 20 MILLIGRAM
     Route: 048
  7. ACETYLSALICYLIC ACID [Concomitant]
     Active Substance: ASPIRIN
     Dosage: 100 MILLIGRAM
     Route: 048
  8. MELATONIN [Concomitant]
     Active Substance: MELATONIN
     Dosage: 100 MILLIGRAM
     Route: 048

REACTIONS (5)
  - Tremor [Unknown]
  - Akathisia [Unknown]
  - Alanine aminotransferase increased [Unknown]
  - Balance disorder [Unknown]
  - Disturbance in attention [Unknown]

NARRATIVE: CASE EVENT DATE: 20190609
